FAERS Safety Report 12639849 (Version 1)
Quarter: 2016Q3

REPORT INFORMATION
  Report Type: Spontaneous
  Country: GB (occurrence: GB)
  Receive Date: 20160810
  Receipt Date: 20160810
  Transmission Date: 20161109
  Serious: Yes (Life-Threatening)
  Sender: FDA-Public Use
  Company Number: GB-TEVA-682678ACC

PATIENT
  Age: 85 Year
  Sex: Male

DRUGS (3)
  1. TURMERIC [Interacting]
     Active Substance: TURMERIC
  2. WARFARIN [Interacting]
     Active Substance: WARFARIN
     Dosage: 1.25 MILLIGRAM DAILY; WARFARIN 3MG + 2.5MG ALTERNATING.
  3. WARFARIN [Suspect]
     Active Substance: WARFARIN
     Dosage: 1.5 MILLIGRAM DAILY; WARFARIN 3MG + 2.5MG  ALTERNATING.

REACTIONS (2)
  - Drug interaction [Unknown]
  - Cardiac arrest [Recovered/Resolved]
